FAERS Safety Report 7042663-0 (Version None)
Quarter: 2010Q4

REPORT INFORMATION
  Report Type: 
  Country: None (occurrence: None)
  Receive Date: 20101013
  Receipt Date: 20091008
  Transmission Date: 20110411
  Serious: No
  Sender: FDA-Public Use
  Company Number: US-ASTRAZENECA-2009SE18878

PATIENT
  Age: 71 Year
  Sex: Male
  Weight: 56.2 kg

DRUGS (1)
  1. SYMBICORT [Suspect]
     Dosage: 160 MCG, BID
     Route: 055
     Dates: start: 20090101

REACTIONS (1)
  - COCCIDIOIDOMYCOSIS [None]
